FAERS Safety Report 15661008 (Version 3)
Quarter: 2019Q2

REPORT INFORMATION
  Report Type: Report from Study
  Country: US (occurrence: US)
  Receive Date: 20181127
  Receipt Date: 20190502
  Transmission Date: 20190711
  Serious: Yes (Hospitalization, Other)
  Sender: FDA-Public Use
  Company Number: US-KYOWAKIRIN-2018BKK008971

PATIENT

DRUGS (7)
  1. BENADRYL [Concomitant]
     Active Substance: DIPHENHYDRAMINE HYDROCHLORIDE
     Indication: PRODUCT USED FOR UNKNOWN INDICATION
     Dosage: 50 MG
     Route: 065
  2. POTELIGEO [Suspect]
     Active Substance: MOGAMULIZUMAB-KPKC
     Dosage: 1 MG/KG EVERY OTHER WEEK
     Route: 042
  3. BENADRYL [Concomitant]
     Active Substance: DIPHENHYDRAMINE HYDROCHLORIDE
     Dosage: 12.5 MG
     Route: 065
  4. PREDNISONE. [Suspect]
     Active Substance: PREDNISONE
     Indication: PRODUCT USED FOR UNKNOWN INDICATION
     Dosage: UNKNOWN
     Route: 065
  5. POTELIGEO [Suspect]
     Active Substance: MOGAMULIZUMAB-KPKC
     Indication: CUTANEOUS T-CELL LYMPHOMA
     Dosage: 1 MG/KG, 1X/WEEK FOR FIRST FIVE INFUSIONS
     Route: 042
     Dates: start: 201809
  6. CORTISONE [Concomitant]
     Active Substance: CORTISONE\HYDROCORTISONE
     Indication: PRODUCT USED FOR UNKNOWN INDICATION
     Dosage: UNK
     Route: 065
  7. PRILOSEC [Concomitant]
     Active Substance: OMEPRAZOLE MAGNESIUM
     Indication: PRODUCT USED FOR UNKNOWN INDICATION
     Dosage: UNK
     Route: 065

REACTIONS (16)
  - Gastric disorder [Not Recovered/Not Resolved]
  - Blood urine present [Not Recovered/Not Resolved]
  - White blood cell count increased [Unknown]
  - Hepatic cirrhosis [Unknown]
  - Ureteral stent insertion [Not Recovered/Not Resolved]
  - Feeling cold [Unknown]
  - Pruritus [Recovered/Resolved]
  - Abdominal pain [Not Recovered/Not Resolved]
  - Diabetes mellitus [Unknown]
  - Pyrexia [Unknown]
  - Somnolence [Recovered/Resolved]
  - Lymphoma [Unknown]
  - Nausea [Unknown]
  - Large intestine polyp [Unknown]
  - Malaise [Unknown]
  - Diarrhoea [Unknown]

NARRATIVE: CASE EVENT DATE: 20180921
